FAERS Safety Report 13226847 (Version 2)
Quarter: 2017Q1

REPORT INFORMATION
  Report Type: Spontaneous
  Country: FO (occurrence: FO)
  Receive Date: 20170213
  Receipt Date: 20170214
  Transmission Date: 20170428
  Serious: Yes (Hospitalization)
  Sender: FDA-Public Use
  Company Number: PHHY2017FO020037

PATIENT
  Age: 75 Year
  Sex: Male

DRUGS (8)
  1. MOXIFLOXACIN. [Interacting]
     Active Substance: MOXIFLOXACIN
     Indication: ABSCESS
  2. ATORVASTATIN [Suspect]
     Active Substance: ATORVASTATIN
     Indication: HYPERLIPIDAEMIA
     Dosage: 80 MG, QD
     Route: 065
  3. MOXIFLOXACIN. [Interacting]
     Active Substance: MOXIFLOXACIN
     Indication: AORTIC ANEURYSM
     Dosage: 400 MG, QD
     Route: 065
  4. RIVAROXABAN [Concomitant]
     Active Substance: RIVAROXABAN
     Indication: ATRIAL FIBRILLATION
     Route: 065
  5. FUSIDIC ACID [Interacting]
     Active Substance: FUSIDIC ACID
     Indication: DEVICE RELATED INFECTION
  6. FUSIDIC ACID [Interacting]
     Active Substance: FUSIDIC ACID
     Indication: ABSCESS
  7. MOXIFLOXACIN. [Interacting]
     Active Substance: MOXIFLOXACIN
     Indication: DEVICE RELATED INFECTION
  8. FUSIDIC ACID [Interacting]
     Active Substance: FUSIDIC ACID
     Indication: AORTIC ANEURYSM
     Dosage: 500 MG, BID
     Route: 065

REACTIONS (2)
  - Rhabdomyolysis [Recovered/Resolved]
  - Drug interaction [Recovered/Resolved]
